FAERS Safety Report 8403174-0 (Version None)
Quarter: 2012Q2

REPORT INFORMATION
  Report Type: 
  Country: None (occurrence: None)
  Receive Date: 20120601
  Receipt Date: 20120523
  Transmission Date: 20120825
  Serious: Yes (Hospitalization)
  Sender: FDA-Public Use
  Company Number: DE-JNJFOC-20120518955

PATIENT
  Sex: Male
  Weight: 50 kg

DRUGS (5)
  1. REMICADE [Suspect]
     Indication: COLITIS ULCERATIVE
     Dosage: 4 X 100 MG, 4 SEPARATE DOSES
     Route: 042
     Dates: start: 20111017, end: 20111018
  2. OMEPRAZOLE [Concomitant]
     Route: 048
     Dates: start: 20111001
  3. METHYLPREDNISOLONE [Concomitant]
     Dosage: DOSE: 32-16 MG
     Route: 048
     Dates: start: 20111001
  4. AZATHIOPRINE [Concomitant]
     Route: 048
     Dates: start: 20111001
  5. MESALAMINE [Concomitant]
     Route: 048
     Dates: start: 20111001

REACTIONS (3)
  - MENINGITIS LISTERIA [None]
  - CONSTIPATION [None]
  - SEPSIS [None]
